FAERS Safety Report 10023090 (Version 2)
Quarter: 2014Q1

REPORT INFORMATION
  Report Type: Report from Study
  Country: PE (occurrence: PE)
  Receive Date: 20140319
  Receipt Date: 20140319
  Transmission Date: 20141002
  Serious: Yes (Death)
  Sender: FDA-Public Use
  Company Number: PE-BRISTOL-MYERS SQUIBB COMPANY-20186805

PATIENT
  Age: 57 Year
  Sex: Male

DRUGS (1)
  1. YERVOY [Suspect]
     Dosage: 1DF:3 AMPS

REACTIONS (3)
  - Death [Fatal]
  - Hypotension [Unknown]
  - Skin disorder [Unknown]
